FAERS Safety Report 15268633 (Version 3)
Quarter: 2018Q3

REPORT INFORMATION
  Report Type: Spontaneous
  Country: DE (occurrence: DE)
  Receive Date: 20180812
  Receipt Date: 20180905
  Transmission Date: 20181010
  Serious: Yes (Death, Hospitalization, Other)
  Sender: FDA-Public Use
  Company Number: DE-009507513-1808DEU003824

PATIENT
  Age: 52 Year
  Sex: Male
  Weight: 75 kg

DRUGS (8)
  1. KEYTRUDA [Suspect]
     Active Substance: PEMBROLIZUMAB
     Indication: PLEURAL MESOTHELIOMA
     Dosage: 150 MG, EVERY THREE WEEKS
     Dates: start: 20171211, end: 20180619
  2. CEFTRIAXONE. [Concomitant]
     Active Substance: CEFTRIAXONE
     Indication: URINARY TRACT INFECTION
     Dosage: 2 G, UNK
     Dates: start: 20180713
  3. ONDANSETRON [Concomitant]
     Active Substance: ONDANSETRON
     Indication: HYPERTONIA
     Dosage: 8 MG, TID
  4. NOVAMINSULFON [Concomitant]
     Active Substance: METAMIZOLE
     Indication: PAIN
     Dosage: 500 MG, TID, 2 TABLETS EACH TIME, FOR PAIN
     Route: 048
  5. PIRITRAMIDE [Concomitant]
     Active Substance: PIRITRAMIDE
     Indication: PAIN
     Dosage: 7.5 MG/1 ML, TID
  6. MORPHINE [Concomitant]
     Active Substance: MORPHINE
     Indication: PAIN
     Dosage: 10 MG, OD (ONCE DAILY)
  7. CAPROS [Concomitant]
     Indication: PAIN
     Dosage: 5 MG, OD (ONCE DAILY)
  8. VALPROATE SODIUM. [Concomitant]
     Active Substance: VALPROATE SODIUM
     Indication: EPILEPSY
     Dosage: 500 MG, BID

REACTIONS (6)
  - Encephalitis [Fatal]
  - Nausea [Unknown]
  - Condition aggravated [Unknown]
  - Asthenia [Unknown]
  - Fatigue [Unknown]
  - Vomiting [Unknown]

NARRATIVE: CASE EVENT DATE: 2018
